FAERS Safety Report 15478001 (Version 1)
Quarter: 2018Q4

REPORT INFORMATION
  Report Type: Spontaneous
  Country: US (occurrence: US)
  Receive Date: 20181002
  Receipt Date: 20181002
  Transmission Date: 20190205
  Serious: Yes (Hospitalization)
  Sender: FDA-Public Use
  Company Number: None

PATIENT
  Age: 66 Year
  Sex: Female

DRUGS (1)
  1. SAXENDA [Suspect]
     Active Substance: LIRAGLUTIDE
     Indication: OBESITY
     Dosage: ?          OTHER DOSE:0.6 MG;?
     Route: 058
     Dates: start: 20180424

REACTIONS (3)
  - Product dose omission [None]
  - Malaise [None]
  - Pneumonia [None]

NARRATIVE: CASE EVENT DATE: 20180928
